FAERS Safety Report 25993187 (Version 1)
Quarter: 2025Q4

REPORT INFORMATION
  Report Type: Report from Study
  Country: KR (occurrence: KR)
  Receive Date: 20251104
  Receipt Date: 20251104
  Transmission Date: 20260118
  Serious: Yes (Hospitalization)
  Sender: ABBVIE
  Company Number: KR-ABBVIE-6524139

PATIENT
  Sex: Female

DRUGS (4)
  1. HUMIRA [Suspect]
     Active Substance: ADALIMUMAB
     Indication: Behcet^s syndrome
     Dosage: FORM STRENGTH: 40 MG, FREQUENCY: ONCE
     Route: 058
     Dates: start: 20230222, end: 20230222
  2. HUMIRA [Suspect]
     Active Substance: ADALIMUMAB
     Dosage: FORM STRENGTH: 40 MG, FREQUENCY: ONCE
     Route: 058
     Dates: start: 20230223, end: 20230223
  3. HUMIRA [Suspect]
     Active Substance: ADALIMUMAB
     Dosage: FORM STRENGTH: 40 MG, FREQUENCY: ONCE
     Route: 058
     Dates: start: 20230308, end: 20230308
  4. HUMIRA [Suspect]
     Active Substance: ADALIMUMAB
     Dosage: FORM STRENGTH: 40 MG, FREQUENCY: ONCE
     Route: 058
     Dates: start: 20230322, end: 20230322

REACTIONS (2)
  - Stomatitis [Recovering/Resolving]
  - Pharyngeal inflammation [Recovering/Resolving]

NARRATIVE: CASE EVENT DATE: 20251001
